FAERS Safety Report 10025762 (Version 7)
Quarter: 2015Q1

REPORT INFORMATION
  Report Type: Spontaneous
  Country: DK (occurrence: None)
  Receive Date: 20140314
  Receipt Date: 20150210
  Transmission Date: 20150720
  Serious: Yes (Hospitalization)
  Sender: FDA-Public Use
  Company Number: 2014MPI00175

PATIENT
  Age: 68 Year
  Sex: Male
  Weight: 63.2 kg

DRUGS (17)
  1. HJERTEMAGNYL (ACETYLSALICYLIC ACID, MAGNESIUM OXIDE) [Concomitant]
  2. TELFAST SANOFI-AVENTIS (FEXOFENADINE HYDROCHLORIDE) [Concomitant]
  3. CARVEDILOL TEVA (CARVEDILOL) [Concomitant]
  4. HUMAN ALBUMIN (ALBUMIN HUMAN) [Concomitant]
  5. OXYNORM NORPHARMA (OXYCODONE HYDROCHLORIDE) [Concomitant]
  6. GUM NICOTINELL MINT (NICOTINE) [Concomitant]
  7. MEROPENEM FAMPLUS (MEROPENEM) [Concomitant]
  8. ADCETRIS [Suspect]
     Active Substance: BRENTUXIMAB VEDOTIN
     Indication: T-CELL LYMPHOMA
     Dosage: 1.8 MG/M2, Q21D, INTRAVENOUS
     Route: 042
     Dates: start: 20140203, end: 20140206
  9. GEL XYLOCAINE ASTRAZENECA (LIDOCAINE HYDROCHLORIDE) [Concomitant]
  10. PINEX ACTAVIS CODEINE PHOSPHATE, PARACETAMOL) [Concomitant]
  11. RAMIPRIL STADA (RAMIPRIL) [Concomitant]
  12. SPIRIVA [Concomitant]
     Active Substance: TIOTROPIUM BROMIDE MONOHYDRATE
  13. IMOCLONE (ZOPICLONE) [Concomitant]
  14. SIMVASTATIN BLUEFISH (SIMVASTATIN) [Concomitant]
  15. ACICLOVIR HOSPIRA (ACICLOVIR) [Concomitant]
  16. HEXAMYCIN (GENTAMICIN SULFATE) [Concomitant]
  17. MORPHINE DAK (MORPHINE HYDROCHLORIDE) [Concomitant]

REACTIONS (7)
  - C-reactive protein increased [None]
  - General physical health deterioration [None]
  - Platelet count decreased [None]
  - Herpes zoster cutaneous disseminated [None]
  - Rash generalised [None]
  - Lymphocyte count decreased [None]
  - Haemoglobin decreased [None]

NARRATIVE: CASE EVENT DATE: 20140226
